FAERS Safety Report 20423360 (Version 3)
Quarter: 2022Q3

REPORT INFORMATION
  Report Type: Spontaneous
  Country: IN (occurrence: IN)
  Receive Date: 20220203
  Receipt Date: 20220914
  Transmission Date: 20221027
  Serious: No
  Sender: FDA-Public Use
  Company Number: IN-PFIZER INC-202200122647

PATIENT
  Age: 61 Year
  Sex: Female
  Weight: 75 kg

DRUGS (1)
  1. LORLATINIB [Suspect]
     Active Substance: LORLATINIB
     Dosage: 50 MG, 2X/DAY (2 TABLETS OF 25 MG IN MORNING AND 2 TABLETS OF LORLATINIB 25 MG IN EVENING PER DAY)
     Route: 048
     Dates: start: 201712

REACTIONS (2)
  - Off label use [Unknown]
  - Prescription drug used without a prescription [Unknown]

NARRATIVE: CASE EVENT DATE: 20171201
